FAERS Safety Report 4541645-8 (Version None)
Quarter: 2004Q4

REPORT INFORMATION
  Report Type: 
  Country: None (occurrence: None)
  Receive Date: 20041227
  Receipt Date: 20041219
  Transmission Date: 20050328
  Serious: Yes (Hospitalization, Other)
  Sender: FDA-Public Use
  Company Number: 20040059USST

PATIENT

DRUGS (3)
  1. PROCARBAZINE HYDROCHLORIDE [Suspect]
     Indication: OLIGODENDROGLIOMA
     Dosage: 60 MG/M2, PO, DAYS 8-21 (MAX 6 CYCLES)
     Route: 048
  2. LOMUSTINE [Suspect]
     Indication: OLIGODENDROGLIOMA
     Dosage: 110 MG/M2  DAY 1(MAX 6 CYCLES
  3. VINCRISTINE [Suspect]
     Indication: OLIGODENDROGLIOMA
     Dosage: 1.4MG/M2 (MAX21MG);  D8 +29 (MAX 6 CYCLES)

REACTIONS (7)
  - HEPATOTOXICITY [None]
  - HYPERSENSITIVITY [None]
  - LEUKOPENIA [None]
  - PULMONARY EMBOLISM [None]
  - PULMONARY TOXICITY [None]
  - THROMBOCYTOPENIA [None]
  - TUMOUR HAEMORRHAGE [None]
